FAERS Safety Report 9541581 (Version 1)
Quarter: 2013Q2

REPORT INFORMATION
  Report Type: Spontaneous
  Country: US (occurrence: None)
  Receive Date: 20130524
  Receipt Date: 20130524
  Transmission Date: 20140414
  Serious: Yes (Other)
  Sender: FDA-Public Use
  Company Number: PHEH2012US025216

PATIENT
  Age: 38 Year
  Sex: Female
  Weight: 52.6 kg

DRUGS (1)
  1. GILENYA (FINGOLIMOD) CAPSULE, 0.5MG [Suspect]
     Indication: MULTIPLE SCLEROSIS
     Route: 048
     Dates: start: 20121219

REACTIONS (5)
  - Nausea [None]
  - Movement disorder [None]
  - Abdominal pain upper [None]
  - Decreased appetite [None]
  - Headache [None]
